FAERS Safety Report 7259628-6 (Version None)
Quarter: 2011Q1

REPORT INFORMATION
  Report Type: 
  Country: None (occurrence: None)
  Receive Date: 20110130
  Receipt Date: 20100907
  Transmission Date: 20110831
  Serious: No
  Sender: FDA-Public Use
  Company Number: US-ABBOTT-10P-163-0663408-00

PATIENT
  Age: 63 Year
  Sex: Female
  Weight: 84.444 kg

DRUGS (7)
  1. ABILIFY [Concomitant]
     Indication: DEPRESSION
     Route: 048
  2. KLONOPIN [Concomitant]
     Indication: PRODUCT USED FOR UNKNOWN INDICATION
     Dosage: 1/2 TAB IN MORNING AND IN EVENING
  3. REMERON [Concomitant]
     Indication: DEPRESSION
     Dosage: AT BEDTIME
     Route: 048
  4. HUMIRA [Suspect]
     Indication: RHEUMATOID ARTHRITIS
     Dates: start: 20100504
  5. METHOTREXATE [Concomitant]
     Indication: RHEUMATOID ARTHRITIS
  6. TRAMADOL HCL [Concomitant]
     Indication: PAIN
  7. ZOLOFT [Concomitant]
     Indication: PRODUCT USED FOR UNKNOWN INDICATION
     Route: 048

REACTIONS (3)
  - ANIMAL BITE [None]
  - KIDNEY INFECTION [None]
  - OEDEMA PERIPHERAL [None]
